FAERS Safety Report 10641199 (Version 1)
Quarter: 2014Q4

REPORT INFORMATION
  Report Type: Spontaneous
  Country: FR (occurrence: None)
  Receive Date: 20141208
  Receipt Date: 20141208
  Transmission Date: 20150529
  Serious: Yes (Hospitalization)
  Sender: FDA-Public Use
  Company Number: 8000383

PATIENT
  Age: 50 Year
  Sex: Female

DRUGS (4)
  1. TRAMADOL HYDROCHLORIDE (TRAMADOL HYDROCHLORIDE) (TRAMADOL HYDROCHLORIDE) [Concomitant]
  2. STILNOX (ZOLPIDEM TARTRATE) (ZOLPIDEM TARTRATE) [Concomitant]
  3. LEVOTHYROX [Suspect]
     Active Substance: LEVOTHYROXINE
     Indication: AUTOIMMUNE THYROIDITIS
     Dosage: 1 IN 1 D
     Route: 048
  4. EFFERALGAN /00020001/ (PARACETAMOL) (PARACETAMOL) [Concomitant]

REACTIONS (1)
  - Hyperthyroidism [None]

NARRATIVE: CASE EVENT DATE: 20140519
